FAERS Safety Report 4939440-0 (Version None)
Quarter: 2006Q1

REPORT INFORMATION
  Report Type: 
  Country: None (occurrence: None)
  Receive Date: 20060306
  Receipt Date: 20060221
  Transmission Date: 20060701
  Serious: Yes (Hospitalization, Other)
  Sender: FDA-Public Use
  Company Number: HQWYE937023FEB06

PATIENT
  Sex: Male

DRUGS (3)
  1. RAPAMUNE [Suspect]
     Indication: PROPHYLAXIS AGAINST TRANSPLANT REJECTION
  2. TACROLIMUS (TACROLIMUS) [Concomitant]
  3. PREDNISONE TAB [Concomitant]

REACTIONS (4)
  - ADENOVIRUS INFECTION [None]
  - ANASTOMOTIC ULCER [None]
  - GASTROENTERITIS EOSINOPHILIC [None]
  - HAEMATOCHEZIA [None]
